FAERS Safety Report 17987639 (Version 3)
Quarter: 2020Q3

REPORT INFORMATION
  Report Type: Spontaneous
  Country: US (occurrence: US)
  Receive Date: 20200707
  Receipt Date: 20200729
  Transmission Date: 20201103
  Serious: No
  Sender: FDA-Public Use
  Company Number: US-GLAXOSMITHKLINE-US2020AMR117411

PATIENT
  Sex: Female

DRUGS (1)
  1. ZEJULA [Suspect]
     Active Substance: NIRAPARIB
     Indication: OVARIAN CANCER
     Dosage: 100 MG, QD
     Route: 048
     Dates: start: 20200617

REACTIONS (6)
  - Feeling hot [Unknown]
  - Blood count abnormal [Unknown]
  - Feeling abnormal [Recovered/Resolved]
  - Constipation [Unknown]
  - Blood pressure increased [Recovered/Resolved]
  - Off label use [Unknown]
